FAERS Safety Report 10303021 (Version 1)
Quarter: 2014Q3

REPORT INFORMATION
  Report Type: Spontaneous
  Country: US (occurrence: US)
  Receive Date: 20140714
  Receipt Date: 20140714
  Transmission Date: 20150326
  Serious: No
  Sender: FDA-Public Use
  Company Number: US-ASTELLAS-2014US004705

PATIENT
  Sex: Female

DRUGS (3)
  1. MYRBETRIQ [Suspect]
     Active Substance: MIRABEGRON
     Indication: URGE INCONTINENCE
     Route: 065
     Dates: start: 20140423
  2. MYRBETRIQ [Suspect]
     Active Substance: MIRABEGRON
     Indication: MICTURITION URGENCY
  3. MYRBETRIQ [Suspect]
     Active Substance: MIRABEGRON
     Indication: POLLAKIURIA

REACTIONS (2)
  - Drug ineffective [Unknown]
  - Intentional product misuse [Unknown]
